FAERS Safety Report 8299028-3 (Version None)
Quarter: 2012Q2

REPORT INFORMATION
  Report Type: 
  Country: None (occurrence: None)
  Receive Date: 20120419
  Receipt Date: 20120418
  Transmission Date: 20120825
  Serious: Yes (Other)
  Sender: FDA-Public Use
  Company Number: US-PFIZER INC-2012086395

PATIENT
  Sex: Female

DRUGS (8)
  1. ZYRTEC [Concomitant]
     Indication: HYPERSENSITIVITY
  2. MOTRIN [Concomitant]
     Indication: ABDOMINAL DISCOMFORT
  3. QVAR 40 [Concomitant]
     Indication: ASTHMA
  4. VITAMIN D [Concomitant]
  5. ALLEGRA [Concomitant]
     Indication: HYPERSENSITIVITY
  6. NORGESTREL AND ETHINYL ESTRADIOL [Suspect]
     Indication: CONTRACEPTION
     Dosage: 1 DF, 1X/DAY
     Dates: start: 20110401, end: 20120201
  7. NAPROXEN (ALEVE) [Concomitant]
     Indication: ABDOMINAL DISCOMFORT
  8. ZANTAC [Concomitant]
     Indication: ABDOMINAL DISCOMFORT

REACTIONS (4)
  - PRODUCT QUALITY ISSUE [None]
  - CYST [None]
  - PERSONALITY CHANGE [None]
  - WOUND INFECTION STAPHYLOCOCCAL [None]
